FAERS Safety Report 10951506 (Version 1)
Quarter: 2015Q1

REPORT INFORMATION
  Report Type: Report from Study
  Country: US (occurrence: US)
  Receive Date: 20150324
  Receipt Date: 20150324
  Transmission Date: 20150721
  Serious: Yes (Death)
  Sender: FDA-Public Use
  Company Number: PHEH2015US005558

PATIENT
  Sex: Male

DRUGS (1)
  1. AFINITOR [Suspect]
     Active Substance: EVEROLIMUS
     Indication: HODGKIN^S DISEASE
     Dosage: 10 MG, QD
     Route: 048
     Dates: start: 20150108

REACTIONS (2)
  - Hodgkin^s disease [Fatal]
  - Product use issue [Unknown]
